FAERS Safety Report 25267567 (Version 1)
Quarter: 2025Q2

REPORT INFORMATION
  Report Type: Spontaneous
  Country: US (occurrence: US)
  Receive Date: 20250505
  Receipt Date: 20250505
  Transmission Date: 20250717
  Serious: Yes (Other)
  Sender: AMARIN
  Company Number: US-Amarin Pharma  Inc-2025AMR000326

PATIENT
  Age: 70 Year
  Sex: Male

DRUGS (3)
  1. VASCEPA [Suspect]
     Active Substance: ICOSAPENT ETHYL
     Indication: Blood cholesterol
     Dosage: DISCONTINUED TREATMENT DUE TO SURGERY
  2. VASCEPA [Suspect]
     Active Substance: ICOSAPENT ETHYL
     Dosage: DISCONTINUED TREATMENT DUE TO SURGERY
  3. VASCEPA [Suspect]
     Active Substance: ICOSAPENT ETHYL
     Dosage: DISCONTINUED TREATMENT DUE TO SURGERY
     Dates: end: 2025

REACTIONS (6)
  - Spinal fusion surgery [Unknown]
  - Therapy interrupted [Unknown]
  - Poor quality product administered [Unknown]
  - Product odour abnormal [Unknown]
  - Product taste abnormal [Unknown]
  - Product physical issue [Unknown]

NARRATIVE: CASE EVENT DATE: 20250101
